FAERS Safety Report 8393380-6 (Version None)
Quarter: 2012Q2

REPORT INFORMATION
  Report Type: 
  Country: None (occurrence: None)
  Receive Date: 20120529
  Receipt Date: 20120518
  Transmission Date: 20120825
  Serious: Yes (Hospitalization)
  Sender: FDA-Public Use
  Company Number: JP-VERTEX PHARMACEUTICALS INC.-AE-2012-005507

PATIENT
  Age: 54 Year
  Sex: Female

DRUGS (13)
  1. TELAVIC (TELAPREVIR) [Suspect]
     Route: 048
     Dates: start: 20120305, end: 20120401
  2. RIBAVIRIN [Concomitant]
     Indication: HEPATITIS C
     Route: 048
     Dates: start: 20120110, end: 20120226
  3. RIBAVIRIN [Concomitant]
     Route: 048
     Dates: start: 20120227, end: 20120302
  4. LOXONIN [Concomitant]
     Route: 048
     Dates: start: 20120111, end: 20120116
  5. PEGINTERFERON ALFA-2B [Concomitant]
     Route: 051
     Dates: start: 20120402
  6. DOGMATYL [Concomitant]
     Route: 048
  7. DOGMATYL [Concomitant]
     Route: 048
     Dates: start: 20120111, end: 20120212
  8. RABEPRAZOLE SODIUM [Concomitant]
     Route: 048
     Dates: start: 20120119, end: 20120205
  9. RIBAVIRIN [Concomitant]
     Route: 048
     Dates: start: 20120402
  10. LENDORMIN D [Concomitant]
     Route: 048
     Dates: start: 20120111, end: 20120116
  11. TELAVIC (TELAPREVIR) [Suspect]
     Indication: HEPATITIS C
     Route: 048
     Dates: start: 20120110, end: 20120304
  12. PEGINTERFERON ALFA-2B [Concomitant]
     Indication: HEPATITIS C
     Route: 051
     Dates: start: 20120110, end: 20120227
  13. PEGINTERFERON ALFA-2B [Concomitant]
     Route: 051
     Dates: start: 20120312, end: 20120326

REACTIONS (3)
  - RENAL IMPAIRMENT [None]
  - ANAEMIA [None]
  - DEPRESSION [None]
